FAERS Safety Report 23614239 (Version 3)
Quarter: 2024Q3

REPORT INFORMATION
  Report Type: Report from Study
  Country: US (occurrence: US)
  Receive Date: 20240310
  Receipt Date: 20240806
  Transmission Date: 20241017
  Serious: Yes (Other)
  Sender: ALEXION PHARMACEUTICALS
  Company Number: US-AstraZeneca-CH-00580348A

PATIENT
  Sex: Female

DRUGS (2)
  1. STRENSIQ [Suspect]
     Active Substance: ASFOTASE ALFA
     Indication: Product used for unknown indication
     Dosage: 2 MILLIGRAM/KILOGRAM (170MG), TIW
     Route: 058
     Dates: start: 202312, end: 202402
  2. STRENSIQ [Suspect]
     Active Substance: ASFOTASE ALFA
     Dosage: 18 MILLIGRAM, QW
     Route: 065

REACTIONS (4)
  - Urinary retention [Unknown]
  - Blood glucose increased [Recovering/Resolving]
  - Dysuria [Recovered/Resolved]
  - Fluid retention [Unknown]
